FAERS Safety Report 11727363 (Version 5)
Quarter: 2016Q1

REPORT INFORMATION
  Report Type: Spontaneous
  Country: US (occurrence: US)
  Receive Date: 20151112
  Receipt Date: 20160303
  Transmission Date: 20160525
  Serious: Yes (Other)
  Sender: FDA-Public Use
  Company Number: US-PFIZER INC-2015369719

PATIENT
  Age: 82 Year
  Sex: Female
  Weight: 67 kg

DRUGS (15)
  1. LIPITOR [Concomitant]
     Active Substance: ATORVASTATIN CALCIUM
     Dosage: 80 MG, DAILY
  2. INLYTA [Suspect]
     Active Substance: AXITINIB
     Dosage: 1 MG, 2X/DAY (3 TABLETS TWICE A DAY)
     Route: 048
  3. LEVOTHYROXINE. [Concomitant]
     Active Substance: LEVOTHYROXINE
     Dosage: UNK
  4. INLYTA [Suspect]
     Active Substance: AXITINIB
     Dosage: 5 MG, 2X/DAY (TAKE ONE TAB EVERY 12 HOURS)
  5. INLYTA [Suspect]
     Active Substance: AXITINIB
     Dosage: 2 DF, 2X/DAY
     Route: 048
  6. FLU VACCINE [Concomitant]
     Active Substance: INFLUENZA VIRUS VACCINE
  7. EFFEXOR XR [Concomitant]
     Active Substance: VENLAFAXINE HYDROCHLORIDE
     Dosage: 75 MG, 2X/DAY
  8. ZETIA [Concomitant]
     Active Substance: EZETIMIBE
     Dosage: 10 MG, DAILY
  9. ECOTRIN [Concomitant]
     Active Substance: ASPIRIN
     Dosage: 81 MG, DAILY
  10. INLYTA [Suspect]
     Active Substance: AXITINIB
     Indication: METASTATIC RENAL CELL CARCINOMA
     Dosage: 5 MG, 2X/DAY
     Route: 048
     Dates: start: 2015, end: 20151027
  11. RENVELA [Concomitant]
     Active Substance: SEVELAMER CARBONATE
     Dosage: 800 MG, DAILY
  12. NORVASC [Concomitant]
     Active Substance: AMLODIPINE BESYLATE
     Dosage: UNK
  13. INLYTA [Suspect]
     Active Substance: AXITINIB
     Dosage: 1 MG, 2X/DAY (2 TABLETS, TWICE DAILY)
     Route: 048
     Dates: start: 201511
  14. TOPROL XL [Concomitant]
     Active Substance: METOPROLOL SUCCINATE
     Dosage: 12.5 MG, 2X/DAY
  15. HYDRALAZINE [Concomitant]
     Active Substance: HYDRALAZINE HYDROCHLORIDE
     Dosage: 50 MG, DAILY

REACTIONS (29)
  - Headache [Unknown]
  - Radius fracture [Unknown]
  - Ligament sprain [Unknown]
  - Diarrhoea [Unknown]
  - Weight decreased [Unknown]
  - Nausea [Unknown]
  - Constipation [Not Recovered/Not Resolved]
  - Increased tendency to bruise [Unknown]
  - Malaise [Unknown]
  - Vomiting [Unknown]
  - Oedema [Unknown]
  - Cough [Unknown]
  - Loss of consciousness [Unknown]
  - Nocturia [Unknown]
  - Decreased appetite [Unknown]
  - Hyperhidrosis [Unknown]
  - Ecchymosis [Unknown]
  - Disturbance in attention [Unknown]
  - Anaemia [Unknown]
  - Fatigue [Unknown]
  - Upper limb fracture [Unknown]
  - Asthenia [Unknown]
  - Dizziness [Unknown]
  - Paraesthesia [Unknown]
  - Post procedural haemorrhage [Unknown]
  - Fall [Unknown]
  - Neck pain [Unknown]
  - Insomnia [Unknown]
  - Ageusia [Unknown]
